FAERS Safety Report 18095448 (Version 1)
Quarter: 2020Q3

REPORT INFORMATION
  Report Type: Spontaneous
  Country: NL (occurrence: NL)
  Receive Date: 20200731
  Receipt Date: 20200731
  Transmission Date: 20201103
  Serious: Yes (Other)
  Sender: FDA-Public Use
  Company Number: NL-TEVA-2020-NL-1808812

PATIENT
  Age: 77 Year
  Sex: Male
  Weight: 77 kg

DRUGS (2)
  1. TAMSULOSINE CAPSULE MGA 0,4MG / BRAND NAME NOT SPECIFIED [Suspect]
     Active Substance: TAMSULOSIN HYDROCHLORIDE
     Indication: MICTURITION DISORDER
     Dosage: .4 MILLIGRAM DAILY; THERAPY END DATE : ASKED BUT UNKNOWN
     Dates: start: 20200101
  2. EYE DROPS [Concomitant]
     Active Substance: UNSPECIFIED INGREDIENT
     Dosage: THERAPY START AND END DATE: ASKED BUT UNKNOWN

REACTIONS (2)
  - Erectile dysfunction [Not Recovered/Not Resolved]
  - Loss of libido [Not Recovered/Not Resolved]

NARRATIVE: CASE EVENT DATE: 20200115
